FAERS Safety Report 9120343 (Version 3)
Quarter: 2013Q2

REPORT INFORMATION
  Report Type: Report from Study
  Country: DE (occurrence: DE)
  Receive Date: 20130226
  Receipt Date: 20130605
  Transmission Date: 20140414
  Serious: Yes (Hospitalization)
  Sender: FDA-Public Use
  Company Number: DE-CELGENEUS-062-C4047-13010930

PATIENT
  Age: 58 Year
  Sex: Male
  Weight: 71 kg

DRUGS (9)
  1. CC-4047 [Suspect]
     Indication: MYELOFIBROSIS
     Dosage: .5 MILLIGRAM
     Route: 048
     Dates: start: 20121001, end: 20130106
  2. PREDNISOLONE [Suspect]
     Indication: MYELOFIBROSIS
     Dosage: 30 MILLIGRAM
     Route: 065
     Dates: start: 20121217, end: 20130106
  3. ERYTHROCYTE CONCENTRATES [Concomitant]
     Indication: PRODUCT USED FOR UNKNOWN INDICATION
     Route: 065
  4. AUGMENTIN [Concomitant]
     Indication: PRODUCT USED FOR UNKNOWN INDICATION
     Route: 065
  5. TAVANIC [Concomitant]
     Indication: PRODUCT USED FOR UNKNOWN INDICATION
     Route: 065
  6. TOREM 5 [Concomitant]
     Indication: PRODUCT USED FOR UNKNOWN INDICATION
     Dosage: 5 MILLIGRAM
     Route: 048
     Dates: start: 20130103
  7. BELOC ZOK [Concomitant]
     Indication: PRODUCT USED FOR UNKNOWN INDICATION
     Route: 048
     Dates: start: 20120920
  8. PANTOZOL [Concomitant]
     Indication: PRODUCT USED FOR UNKNOWN INDICATION
     Route: 048
     Dates: start: 20120920
  9. PALLADON [Concomitant]
     Indication: PRODUCT USED FOR UNKNOWN INDICATION
     Dosage: 6 MILLIGRAM
     Route: 048
     Dates: start: 20120830

REACTIONS (1)
  - Rib fracture [Recovered/Resolved]
